FAERS Safety Report 24687076 (Version 1)
Quarter: 2024Q4

REPORT INFORMATION
  Report Type: Spontaneous
  Country: US (occurrence: None)
  Receive Date: 20241202
  Receipt Date: 20241202
  Transmission Date: 20250114
  Serious: No
  Sender: Public
  Company Number: None

PATIENT
  Age: 25 Year
  Sex: Female

DRUGS (4)
  1. APLISOL [Suspect]
     Active Substance: TUBERCULIN PURIFIED PROTEIN DERIVATIVE
     Dosage: INTRADERMAL - ID  ?LEFT ARM ?1 DOSE
  2. OXCARBAZEPINE [Concomitant]
     Active Substance: OXCARBAZEPINE
  3. TRINTELLIX [Concomitant]
     Active Substance: VORTIOXETINE HYDROBROMIDE
  4. PROPRANOLOL [Concomitant]
     Active Substance: PROPRANOLOL HYDROCHLORIDE

REACTIONS (4)
  - Unresponsive to stimuli [None]
  - Respiratory arrest [None]
  - Muscle rigidity [None]
  - Eye movement disorder [None]

NARRATIVE: CASE EVENT DATE: 20241115
